FAERS Safety Report 13021155 (Version 1)
Quarter: 2016Q4

REPORT INFORMATION
  Report Type: Spontaneous
  Country: US (occurrence: US)
  Receive Date: 20161212
  Receipt Date: 20161212
  Transmission Date: 20170207
  Serious: No
  Sender: FDA-Public Use
  Company Number: None

PATIENT
  Age: 59 Year
  Sex: Female

DRUGS (2)
  1. COPAXONE [Suspect]
     Active Substance: GLATIRAMER ACETATE
     Indication: MULTIPLE SCLEROSIS
  2. COPAXONE [Suspect]
     Active Substance: GLATIRAMER ACETATE
     Indication: ESSENTIAL HYPERTENSION

REACTIONS (4)
  - Memory impairment [None]
  - Decreased appetite [None]
  - Amnesia [None]
  - Drug dose omission [None]

NARRATIVE: CASE EVENT DATE: 20161209
